FAERS Safety Report 5060178-6 (Version None)
Quarter: 2006Q3

REPORT INFORMATION
  Report Type: 
  Country: None (occurrence: None)
  Receive Date: 20060719
  Receipt Date: 20060706
  Transmission Date: 20061208
  Serious: Yes (Hospitalization)
  Sender: FDA-Public Use
  Company Number: 227054

PATIENT
  Age: 63 Year
  Sex: Female

DRUGS (10)
  1. MABTHERA(RITUXIMAB) CONC FOR SOLUTION FOR INFUSION [Suspect]
     Indication: B-CELL LYMPHOMA
     Dosage: 637 MG, Q3W, INTRAVENOUS
     Route: 042
     Dates: start: 20051230
  2. MABTHERA(RITUXIMAB) CONC FOR SOLUTION FOR INFUSION [Suspect]
  3. CYCLOPHOSHPAMIDE (CYCLOPHOSPHAMIDE) [Suspect]
     Indication: B-CELL LYMPHOMA
     Dosage: SEE IMAGE
     Dates: start: 20051230
  4. CYCLOPHOSHPAMIDE (CYCLOPHOSPHAMIDE) [Suspect]
     Indication: B-CELL LYMPHOMA
     Dosage: SEE IMAGE
     Dates: start: 20060327
  5. DOXORUBICIN HCL [Suspect]
     Indication: B-CELL LYMPHOMA
     Dosage: SEE IMAGE
     Dates: start: 20051230
  6. DOXORUBICIN HCL [Suspect]
     Indication: B-CELL LYMPHOMA
     Dosage: SEE IMAGE
     Dates: start: 20060327
  7. VINCRISTINE [Suspect]
     Indication: B-CELL LYMPHOMA
     Dosage: 2 MG, Q3W, INTRAVENOUS
     Route: 042
     Dates: start: 20051230
  8. PREDNISONE TAB [Suspect]
     Indication: B-CELL LYMPHOMA
     Dosage: 100 MG, Q3W, INTRAVENOUS
     Route: 042
     Dates: start: 20051230
  9. LEVOTHROID [Concomitant]
  10. OMEPRAZOLE [Concomitant]

REACTIONS (2)
  - NEUTROPENIA [None]
  - PYREXIA [None]
